FAERS Safety Report 8375508-7 (Version None)
Quarter: 2012Q1

REPORT INFORMATION
  Report Type: 
  Country: None (occurrence: None)
  Receive Date: 20120323
  Receipt Date: 20110617
  Transmission Date: 20120608
  Serious: Yes (Hospitalization, Other)
  Sender: FDA-Public Use
  Company Number: 163-21880-11030409

PATIENT
  Age: 61 Year
  Sex: Male

DRUGS (4)
  1. REVLIMID [Suspect]
  2. REVLIMID [Suspect]
     Indication: MULTIPLE MYELOMA
     Dosage: 10 MG, 1 IN 1 D, PO : 15-25MG, DAILY, PO : 15 MG, 1 IN 1 D, PO
     Route: 048
     Dates: start: 20080718, end: 20080101
  3. REVLIMID [Suspect]
     Indication: MULTIPLE MYELOMA
     Dosage: 10 MG, 1 IN 1 D, PO : 15-25MG, DAILY, PO : 15 MG, 1 IN 1 D, PO
     Route: 048
     Dates: start: 20101101
  4. REVLIMID [Suspect]
     Indication: MULTIPLE MYELOMA
     Dosage: 10 MG, 1 IN 1 D, PO : 15-25MG, DAILY, PO : 15 MG, 1 IN 1 D, PO
     Route: 048
     Dates: start: 20080801, end: 20100101

REACTIONS (2)
  - DEEP VEIN THROMBOSIS [None]
  - ADVERSE DRUG REACTION [None]
